FAERS Safety Report 24060784 (Version 2)
Quarter: 2025Q2

REPORT INFORMATION
  Report Type: Spontaneous
  Country: GB (occurrence: GB)
  Receive Date: 20240708
  Receipt Date: 20250410
  Transmission Date: 20250716
  Serious: Yes (Life-Threatening, Hospitalization, Other)
  Sender: PFIZER
  Company Number: None

PATIENT
  Sex: Female
  Weight: 40 kg

DRUGS (1)
  1. LINEZOLID [Suspect]
     Active Substance: LINEZOLID

REACTIONS (1)
  - Pancytopenia [Recovering/Resolving]
